FAERS Safety Report 17268224 (Version 2)
Quarter: 2020Q2

REPORT INFORMATION
  Report Type: Spontaneous
  Country: US (occurrence: US)
  Receive Date: 20200114
  Receipt Date: 20200403
  Transmission Date: 20200713
  Serious: Yes (Hospitalization, Other)
  Sender: FDA-Public Use
  Company Number: US-BAYER-2020-005368

PATIENT
  Age: 41 Year
  Sex: Female

DRUGS (6)
  1. MIDAZOLAM. [Concomitant]
     Active Substance: MIDAZOLAM
     Indication: COLONOSCOPY
     Dosage: 2 UNK
     Route: 042
  2. MIRALAX [Suspect]
     Active Substance: POLYETHYLENE GLYCOL 3350
     Indication: COLONOSCOPY
     Dosage: UNK
     Route: 065
     Dates: start: 201812
  3. MIRALAX [Suspect]
     Active Substance: POLYETHYLENE GLYCOL 3350
     Indication: ENDOSCOPY
  4. MIDAZOLAM. [Concomitant]
     Active Substance: MIDAZOLAM
     Indication: ENDOSCOPY UPPER GASTROINTESTINAL TRACT
     Dosage: 8 MG
     Route: 042
  5. FENTANYL. [Concomitant]
     Active Substance: FENTANYL
     Indication: ENDOSCOPY UPPER GASTROINTESTINAL TRACT
     Dosage: 100 MICROGRAM PER GRAM
  6. ZOFRAN [Concomitant]
     Active Substance: ONDANSETRON HYDROCHLORIDE
     Indication: ENDOSCOPY UPPER GASTROINTESTINAL TRACT
     Dosage: 4 MG
     Route: 042

REACTIONS (9)
  - Gastritis [None]
  - Haemorrhoids [None]
  - Intestinal obstruction [None]
  - Gastrooesophageal reflux disease [Recovered/Resolved]
  - Off label use [Unknown]
  - Abdominal pain [None]
  - Product use in unapproved indication [Unknown]
  - Intestinal gangrene [Recovered/Resolved]
  - Intestinal ischaemia [None]

NARRATIVE: CASE EVENT DATE: 20181206
